FAERS Safety Report 4748583-6 (Version None)
Quarter: 2005Q3

REPORT INFORMATION
  Report Type: 
  Country: None (occurrence: None)
  Receive Date: 20050819
  Receipt Date: 20050809
  Transmission Date: 20060218
  Serious: Yes (Other)
  Sender: FDA-Public Use
  Company Number: US-JNJFOC-20050800239

PATIENT
  Sex: Male
  Weight: 65.77 kg

DRUGS (35)
  1. REMICADE [Suspect]
     Route: 042
  2. REMICADE [Suspect]
     Indication: RHEUMATOID ARTHRITIS
     Dosage: FISRT INFUSION
     Route: 042
  3. CELEBREX [Concomitant]
  4. METHOTREXATE [Concomitant]
  5. PRILOSEC [Concomitant]
  6. KENALOG [Concomitant]
  7. ORINASE [Concomitant]
  8. LEUCOVORIN CALCIUM [Concomitant]
  9. FOLIC ACID [Concomitant]
  10. MYSOLINE [Concomitant]
  11. VIAGRA [Concomitant]
  12. ARAVA [Concomitant]
  13. PREVICID [Concomitant]
  14. MSM [Concomitant]
  15. ACTONEL [Concomitant]
  16. CALCIUM GLUCONATE [Concomitant]
  17. TUMS [Concomitant]
  18. NEXIUM [Concomitant]
  19. HYDROCHLOROTHIAZIDE [Concomitant]
  20. ADVAIR DISKUS 100/50 [Concomitant]
  21. ADVAIR DISKUS 100/50 [Concomitant]
  22. DIDRONEL [Concomitant]
  23. ASPIRIN [Concomitant]
  24. TESTOSTERONE PATCH [Concomitant]
  25. TRAZADONE [Concomitant]
  26. ALPRAZOLAN [Concomitant]
  27. PREDNISONE [Concomitant]
  28. TYLENOL [Concomitant]
  29. ANTIVERT [Concomitant]
  30. ANTIVERT [Concomitant]
  31. PLAQUENIL [Concomitant]
  32. AZULFIDINE [Concomitant]
  33. INSULIN [Concomitant]
  34. CARAFATE [Concomitant]
  35. TYLENOL [Concomitant]

REACTIONS (3)
  - CHILLS [None]
  - DIFFUSE LARGE B-CELL LYMPHOMA [None]
  - PYREXIA [None]
